FAERS Safety Report 4526702-4 (Version None)
Quarter: 2004Q4

REPORT INFORMATION
  Report Type: 
  Country: None (occurrence: None)
  Receive Date: 20041214
  Receipt Date: 20041207
  Transmission Date: 20050328
  Serious: Yes (Congenital Anomaly)
  Sender: FDA-Public Use
  Company Number: DE-JNJFOC-20041201489

PATIENT

DRUGS (3)
  1. CAELYX [Suspect]
  2. CISPLATIN [Suspect]
     Route: 042
  3. METHOTREXATE [Suspect]

REACTIONS (2)
  - CONGENITAL OSTEODYSTROPHY [None]
  - SMALL FOR DATES BABY [None]
